FAERS Safety Report 5924930-4 (Version None)
Quarter: 2008Q4

REPORT INFORMATION
  Report Type: 
  Country: None (occurrence: None)
  Receive Date: 20081020
  Receipt Date: 20081020
  Transmission Date: 20090506
  Serious: Yes (Other)
  Sender: FDA-Public Use
  Company Number: None

PATIENT
  Age: 60 Year
  Sex: Female
  Weight: 81.6475 kg

DRUGS (1)
  1. ZETIA [Suspect]
     Indication: DRUG USE FOR UNKNOWN INDICATION
     Dosage: 10 MGS 1 DAILY PO
     Route: 048
     Dates: start: 20050110, end: 20081003

REACTIONS (3)
  - PAIN [None]
  - PANCREATIC MASS [None]
  - PANCREATITIS ACUTE [None]
